FAERS Safety Report 7265387-3 (Version None)
Quarter: 2011Q1

REPORT INFORMATION
  Report Type: 
  Country: None (occurrence: None)
  Receive Date: 20110131
  Receipt Date: 20110120
  Transmission Date: 20110831
  Serious: Yes (Hospitalization)
  Sender: FDA-Public Use
  Company Number: US-ROCHE-748967

PATIENT
  Sex: Female
  Weight: 122 kg

DRUGS (8)
  1. SYNTHROID [Concomitant]
     Indication: HYPOTHYROIDISM
  2. COUMADIN [Concomitant]
  3. NEURONTIN [Concomitant]
  4. INSULIN [Concomitant]
     Dates: start: 20070101
  5. CELLCEPT [Suspect]
     Indication: DEMYELINATION
     Route: 065
     Dates: start: 20060101
  6. REBIF [Suspect]
     Route: 058
     Dates: start: 20080605
  7. ATENOLOL [Concomitant]
     Dates: end: 20090601
  8. AVAPRO [Concomitant]
     Dates: end: 20090601

REACTIONS (9)
  - GAIT DISTURBANCE [None]
  - RENAL FAILURE [None]
  - NEUROPATHY PERIPHERAL [None]
  - HYPOAESTHESIA [None]
  - PARAESTHESIA [None]
  - DEMYELINATION [None]
  - CELLULITIS [None]
  - EAR INFECTION [None]
  - BACTERAEMIA [None]
